FAERS Safety Report 18472986 (Version 1)
Quarter: 2020Q4

REPORT INFORMATION
  Report Type: Spontaneous
  Country: PT (occurrence: PT)
  Receive Date: 20201106
  Receipt Date: 20201106
  Transmission Date: 20210114
  Serious: Yes (Hospitalization)
  Sender: FDA-Public Use
  Company Number: PT-STRIDES ARCOLAB LIMITED-2020SP013424

PATIENT
  Age: 23 Year
  Sex: Female

DRUGS (3)
  1. LAMIVUDINE. [Suspect]
     Active Substance: LAMIVUDINE
     Indication: HIV INFECTION
     Dosage: UNK
     Route: 065
  2. DOLUTEGRAVIR [Suspect]
     Active Substance: DOLUTEGRAVIR
     Indication: HIV INFECTION
     Dosage: UNK
     Route: 065
  3. ABACAVIR. [Suspect]
     Active Substance: ABACAVIR
     Indication: HIV INFECTION
     Dosage: UNK
     Route: 065

REACTIONS (9)
  - Ischaemic stroke [Recovered/Resolved]
  - Stenosis [Recovered/Resolved]
  - Herpes simplex [Unknown]
  - Facial paresis [Recovered/Resolved]
  - Speech disorder [Recovered/Resolved]
  - Hemiparesis [Recovered/Resolved]
  - Vasculitis [Unknown]
  - Immune reconstitution inflammatory syndrome [Recovered/Resolved]
  - Aphasia [Recovered/Resolved]
